FAERS Safety Report 12983652 (Version 3)
Quarter: 2016Q4

REPORT INFORMATION
  Report Type: Spontaneous
  Country: JP (occurrence: JP)
  Receive Date: 20161129
  Receipt Date: 20161222
  Transmission Date: 20170207
  Serious: Yes (Death, Life-Threatening)
  Sender: FDA-Public Use
  Company Number: JP-PFIZER INC-2016552012

PATIENT
  Age: 83 Year
  Sex: Female
  Weight: 40.4 kg

DRUGS (4)
  1. IRINOTECAN HCL [Suspect]
     Active Substance: IRINOTECAN HYDROCHLORIDE
     Indication: COLON CANCER STAGE IV
     Dosage: FOLFIRI DOSE WAS REDUCED TO 70%
  2. CETUXIMAB [Suspect]
     Active Substance: CETUXIMAB
     Indication: COLON CANCER STAGE IV
     Dosage: 10 MG/KG, 400 MG/BODY FOR USE AT INTERVALS OF 2 WEEKS
  3. CALCIUM FOLINATE [Suspect]
     Active Substance: LEUCOVORIN CALCIUM
     Indication: COLON CANCER STAGE IV
     Dosage: FOLFIRI DOSE WAS REDUCED TO 70%
  4. FLUOROURACIL. [Suspect]
     Active Substance: FLUOROURACIL
     Indication: COLON CANCER STAGE IV
     Dosage: FOLFIRI DOSE WAS REDUCED TO 70%

REACTIONS (7)
  - Tumour lysis syndrome [Recovered/Resolved]
  - Ileus [Recovering/Resolving]
  - Pulmonary oedema [Unknown]
  - Multiple organ dysfunction syndrome [Fatal]
  - Renal impairment [Unknown]
  - Pneumonia aspiration [Fatal]
  - Shock [Unknown]
